FAERS Safety Report 18440042 (Version 2)
Quarter: 2021Q1

REPORT INFORMATION
  Report Type: Report from Study
  Country: ES (occurrence: ES)
  Receive Date: 20201029
  Receipt Date: 20210203
  Transmission Date: 20210419
  Serious: Yes (Hospitalization)
  Sender: FDA-Public Use
  Company Number: ES-GLAXOSMITHKLINE-ES2020181093

PATIENT
  Age: 47 Year
  Sex: Female
  Weight: 88 kg

DRUGS (2)
  1. BELIMUMAB SUBCUTANEOUS [Suspect]
     Active Substance: BELIMUMAB
     Indication: SYSTEMIC LUPUS ERYTHEMATOSUS
     Dosage: UNK
     Dates: start: 20190513
  2. RITUXIMAB. [Suspect]
     Active Substance: RITUXIMAB
     Indication: SYSTEMIC LUPUS ERYTHEMATOSUS
     Dosage: UNK
     Dates: start: 20190611

REACTIONS (1)
  - Diarrhoea [Recovered/Resolved]

NARRATIVE: CASE EVENT DATE: 20200908
